FAERS Safety Report 15679988 (Version 1)
Quarter: 2018Q4

REPORT INFORMATION
  Report Type: Spontaneous
  Country: NO (occurrence: NO)
  Receive Date: 20181203
  Receipt Date: 20181203
  Transmission Date: 20190205
  Serious: Yes (Hospitalization)
  Sender: FDA-Public Use
  Company Number: NO-TEVA-2018-NO-982791

PATIENT
  Age: 76 Year
  Sex: Male

DRUGS (2)
  1. RIFAMPICIN [Concomitant]
     Active Substance: RIFAMPIN
     Indication: ARTHRITIS INFECTIVE
     Route: 065
  2. CIPROFLOXACIN. [Suspect]
     Active Substance: CIPROFLOXACIN
     Indication: ARTHRITIS INFECTIVE
     Dosage: 1500 MILLIGRAM DAILY;
     Route: 048

REACTIONS (1)
  - Aortic valve prolapse [Recovered/Resolved with Sequelae]
